FAERS Safety Report 8066871-5 (Version None)
Quarter: 2012Q1

REPORT INFORMATION
  Report Type: 
  Country: None (occurrence: None)
  Receive Date: 20120124
  Receipt Date: 20120120
  Transmission Date: 20120608
  Serious: Yes (Other)
  Sender: FDA-Public Use
  Company Number: US-TEVA-310498USA

PATIENT
  Sex: Male

DRUGS (2)
  1. CLARAVIS [Suspect]
  2. ISOTRETINOIN [Suspect]

REACTIONS (3)
  - SUICIDAL IDEATION [None]
  - DEPRESSION [None]
  - MOOD ALTERED [None]
